FAERS Safety Report 4428493-4 (Version None)
Quarter: 2004Q3

REPORT INFORMATION
  Report Type: 
  Country: None (occurrence: None)
  Receive Date: 20040816
  Receipt Date: 20040804
  Transmission Date: 20050211
  Serious: No
  Sender: FDA-Public Use
  Company Number: 2004UW16516

PATIENT
  Age: 81 Year
  Sex: Male

DRUGS (1)
  1. ZOLADEX [Suspect]
     Dates: start: 20000401

REACTIONS (1)
  - DIALYSIS [None]
